FAERS Safety Report 23640472 (Version 4)
Quarter: 2024Q2

REPORT INFORMATION
  Report Type: Report from Study
  Country: CA (occurrence: CA)
  Receive Date: 20240317
  Receipt Date: 20240607
  Transmission Date: 20240715
  Serious: Yes (Other)
  Sender: FDA-Public Use
  Company Number: CA-JNJFOC-20240322513

PATIENT
  Age: 8 Year
  Sex: Female

DRUGS (3)
  1. REMICADE [Suspect]
     Active Substance: INFLIXIMAB
     Indication: Crohn^s disease
     Route: 041
     Dates: start: 20230420
  2. REMICADE [Suspect]
     Active Substance: INFLIXIMAB
     Route: 041
     Dates: start: 20230420
  3. ENTYVIO [Concomitant]
     Active Substance: VEDOLIZUMAB
     Indication: Crohn^s disease
     Route: 042
     Dates: start: 20240416

REACTIONS (7)
  - Haematochezia [Not Recovered/Not Resolved]
  - Intentional product use issue [Unknown]
  - Eye pain [Unknown]
  - Abdominal pain upper [Unknown]
  - Lip blister [Not Recovered/Not Resolved]
  - Arthralgia [Unknown]
  - Off label use [Unknown]
